FAERS Safety Report 23308798 (Version 1)
Quarter: 2023Q4

REPORT INFORMATION
  Report Type: Spontaneous
  Country: US (occurrence: None)
  Receive Date: 20231218
  Receipt Date: 20231218
  Transmission Date: 20240110
  Serious: No
  Sender: FDA-Public Use
  Company Number: 2023A225744

PATIENT
  Age: 77 Year
  Sex: Female

DRUGS (10)
  1. TEZSPIRE [Suspect]
     Active Substance: TEZEPELUMAB-EKKO
     Route: 058
     Dates: start: 20220809
  2. SYMBICORT [Concomitant]
     Active Substance: BUDESONIDE\FORMOTEROL FUMARATE DIHYDRATE
     Route: 055
  3. MYRBETRIQ [Concomitant]
     Active Substance: MIRABEGRON
     Dosage: 25.0MG UNKNOWN
  4. MONTTELUKAST [Concomitant]
     Dosage: 10.0MG UNKNOWN
  5. FLUTICASONE [Concomitant]
     Active Substance: FLUTICASONE
  6. FIBER [Concomitant]
     Dosage: 625.0MG UNKNOWN
  7. ALBUTEROL [Concomitant]
     Active Substance: ALBUTEROL
  8. NEXIUM [Concomitant]
     Active Substance: ESOMEPRAZOLE MAGNESIUM
     Dosage: 40.0MG UNKNOWN
  9. LISINOPRIL [Concomitant]
     Active Substance: LISINOPRIL
     Dosage: 10.0MG UNKNOWN
  10. CALCIUM [Concomitant]
     Active Substance: CALCIUM
     Dosage: 600.0MG UNKNOWN

REACTIONS (1)
  - Back pain [Unknown]
